FAERS Safety Report 8970736 (Version 1)
Quarter: 2012Q4

REPORT INFORMATION
  Report Type: 
  Country: US (occurrence: US)
  Receive Date: 20121218
  Receipt Date: 20121218
  Transmission Date: 20130627
  Serious: No
  Sender: FDA-Public Use
  Company Number: US-GLAXOSMITHKLINE-A0997780A

PATIENT
  Sex: Female

DRUGS (2)
  1. NICORETTE NICOTINE POLACRILEX LOZENGE, 4MG [Suspect]
     Indication: EX-TOBACCO USER
     Dates: start: 2010
  2. NICORETTE [Suspect]
     Indication: EX-TOBACCO USER

REACTIONS (3)
  - Drug ineffective [Unknown]
  - Hunger [Recovered/Resolved]
  - Product quality issue [Unknown]
